FAERS Safety Report 16909781 (Version 1)
Quarter: 2019Q4

REPORT INFORMATION
  Report Type: Spontaneous
  Country: US (occurrence: US)
  Receive Date: 20191011
  Receipt Date: 20191011
  Transmission Date: 20200122
  Serious: No
  Sender: FDA-Public Use
  Company Number: US-GLAXOSMITHKLINE-US2019179953

PATIENT
  Sex: Male

DRUGS (1)
  1. TRELEGY ELLIPTA [Suspect]
     Active Substance: FLUTICASONE FUROATE\UMECLIDINIUM BROMIDE\VILANTEROL TRIFENATATE
     Indication: PRODUCT USED FOR UNKNOWN INDICATION
     Dosage: 1 DF, QD 100/62.5/25 UG
     Route: 065
     Dates: start: 20190919

REACTIONS (5)
  - Wrong technique in device usage process [Unknown]
  - Drug ineffective [Unknown]
  - Extra dose administered [Unknown]
  - Dyspnoea [Unknown]
  - Cough [Unknown]
